FAERS Safety Report 10171423 (Version 1)
Quarter: 2014Q2

REPORT INFORMATION
  Report Type: Spontaneous
  Country: FR (occurrence: FR)
  Receive Date: 20140514
  Receipt Date: 20140514
  Transmission Date: 20141212
  Serious: Yes (Hospitalization)
  Sender: FDA-Public Use
  Company Number: FR-ASTRAZENECA-2014SE31722

PATIENT
  Age: 91 Year
  Sex: Female

DRUGS (10)
  1. ALPRAZOLAM [Concomitant]
  2. BISOCE [Concomitant]
  3. DOLIPRANE [Concomitant]
  4. PROCORALAN [Concomitant]
  5. REPAGLINIDE [Concomitant]
  6. TAHOR [Concomitant]
  7. LEVEMIR [Concomitant]
  8. NITRIDERM [Concomitant]
  9. INEXIUM [Suspect]
     Indication: ABDOMINAL PAIN UPPER
     Route: 048
     Dates: start: 201403, end: 20140406
  10. EFFEXOR [Suspect]
     Route: 048
     Dates: end: 20140406

REACTIONS (4)
  - Hyperkalaemia [Unknown]
  - Cardiac failure [Unknown]
  - Hyponatraemia [Recovered/Resolved]
  - Confusional state [Recovered/Resolved]
